FAERS Safety Report 4898407-1 (Version None)
Quarter: 2006Q1

REPORT INFORMATION
  Report Type: 
  Country: None (occurrence: None)
  Receive Date: 20060131
  Receipt Date: 20060131
  Transmission Date: 20060701
  Serious: Yes (Other)
  Sender: FDA-Public Use
  Company Number: None

PATIENT
  Age: 25 Year
  Sex: Female
  Weight: 58.514 kg

DRUGS (3)
  1. MIRENA [Suspect]
     Indication: CONTRACEPTION
     Dates: start: 20050705, end: 20060203
  2. MIRENA [Suspect]
     Indication: IUCD COMPLICATION
     Dates: start: 20050705, end: 20060203
  3. MIRENA [Concomitant]

REACTIONS (8)
  - ASTHENIA [None]
  - FATIGUE [None]
  - IUCD COMPLICATION [None]
  - MENORRHAGIA [None]
  - MUSCLE SPASMS [None]
  - POLYMENORRHOEA [None]
  - PROCEDURAL PAIN [None]
  - UTERINE PERFORATION [None]
